FAERS Safety Report 16978561 (Version 3)
Quarter: 2019Q4

REPORT INFORMATION
  Report Type: Report from Study
  Country: None (occurrence: CA)
  Receive Date: 20191031
  Receipt Date: 20191211
  Transmission Date: 20200122
  Serious: Yes (Hospitalization, Other)
  Sender: FDA-Public Use
  Company Number: CA-ABBVIE-19K-028-2979105-00

PATIENT
  Age: 80 Year
  Sex: Female
  Weight: 77 kg

DRUGS (2)
  1. HUMIRA [Suspect]
     Active Substance: ADALIMUMAB
     Indication: ANKYLOSING SPONDYLITIS
     Route: 058
     Dates: start: 20180216, end: 20191021
  2. HUMIRA [Suspect]
     Active Substance: ADALIMUMAB
     Route: 058
     Dates: start: 2019

REACTIONS (8)
  - Haemoglobin decreased [Recovered/Resolved]
  - Pneumonia [Recovered/Resolved]
  - Orthostatic hypotension [Unknown]
  - Therapeutic response shortened [Not Recovered/Not Resolved]
  - Transfusion [Unknown]
  - Confusional state [Unknown]
  - Arthralgia [Not Recovered/Not Resolved]
  - Dehydration [Unknown]

NARRATIVE: CASE EVENT DATE: 2019
